FAERS Safety Report 21667609 (Version 10)
Quarter: 2024Q1

REPORT INFORMATION
  Report Type: Spontaneous
  Country: US (occurrence: US)
  Receive Date: 20221201
  Receipt Date: 20240226
  Transmission Date: 20240409
  Serious: No
  Sender: FDA-Public Use
  Company Number: US-PFIZER INC-PV202200114072

PATIENT
  Age: 68 Year
  Sex: Female
  Weight: 50.34 kg

DRUGS (3)
  1. IBRANCE [Suspect]
     Active Substance: PALBOCICLIB
     Indication: Breast cancer female
     Dosage: 125 MG
  2. IBRANCE [Suspect]
     Active Substance: PALBOCICLIB
     Dosage: 75 MG, 1X/DAY
     Dates: start: 202212
  3. IBRANCE [Suspect]
     Active Substance: PALBOCICLIB
     Dosage: ONCE DAILY AT SAME TIME EACH DAY WITH FOOD ON DAYS 1-14 OF EACH 28 DAY CYCLE/ 2 WEEKS ON 2 WEEKS OFF
     Route: 048

REACTIONS (4)
  - Hypoacusis [Unknown]
  - Full blood count decreased [Unknown]
  - Off label use [Unknown]
  - Product use issue [Unknown]
